FAERS Safety Report 8010528-3 (Version None)
Quarter: 2011Q4

REPORT INFORMATION
  Report Type: 
  Country: None (occurrence: None)
  Receive Date: 20111228
  Receipt Date: 20111220
  Transmission Date: 20120403
  Serious: Yes (Other)
  Sender: FDA-Public Use
  Company Number: PHEH2011US01222

PATIENT
  Sex: Female

DRUGS (12)
  1. FUROSEMIDE [Concomitant]
     Dosage: UNK UKN, UNK
  2. POTASSIUM [Concomitant]
     Dosage: UNK UKN, UNK
  3. TASIGNA [Suspect]
     Indication: CHRONIC MYELOID LEUKAEMIA
     Dosage: 200 MG, BID
     Route: 048
     Dates: start: 20080801
  4. COQ10 [Concomitant]
  5. CRESTOR [Concomitant]
     Dosage: UNK UKN, UNK
  6. PLAVIX [Concomitant]
     Dosage: UNK UKN, UNK
  7. OMEPRAZOLE [Concomitant]
     Dosage: UNK UKN, UNK
  8. CEFPROZIL [Concomitant]
     Dosage: UNK UKN, UNK
  9. BONIVA [Concomitant]
     Dosage: UNK UKN, UNK
  10. FISH OIL [Concomitant]
  11. METOPROLOL SUCCINATE [Concomitant]
     Dosage: UNK UKN, UNK
  12. TOPROL-XL [Concomitant]

REACTIONS (5)
  - DYSPNOEA [None]
  - WEIGHT INCREASED [None]
  - PAIN IN EXTREMITY [None]
  - PLEURAL EFFUSION [None]
  - INTERMITTENT CLAUDICATION [None]
